FAERS Safety Report 25494970 (Version 2)
Quarter: 2025Q3

REPORT INFORMATION
  Report Type: Report from Study
  Country: US (occurrence: US)
  Receive Date: 20250630
  Receipt Date: 20250708
  Transmission Date: 20251021
  Serious: Yes (Hospitalization)
  Sender: ALNYLAM PHARMACEUTICALS
  Company Number: US-ALNYLAM PHARMACEUTICALS, INC.-ALN-2025-004067

PATIENT

DRUGS (6)
  1. OXLUMO [Suspect]
     Active Substance: LUMASIRAN
     Indication: Primary hyperoxaluria
     Dosage: UNK, Q3M
     Route: 058
     Dates: start: 20210104, end: 20210104
  2. NORVASC [Concomitant]
     Active Substance: AMLODIPINE BESYLATE
     Indication: Renovascular hypertension
     Dosage: 5 MILLIGRAM, QD
     Route: 048
     Dates: start: 20220106
  3. VYVANSE [Concomitant]
     Active Substance: LISDEXAMFETAMINE DIMESYLATE
     Indication: Central nervous system stimulation
     Dosage: 40 MILLIGRAM, QD
     Route: 048
     Dates: start: 20161216
  4. Maox [Concomitant]
     Indication: Mineral supplementation
     Dosage: 420 MILLIGRAM, QD
     Route: 048
     Dates: start: 20170201
  5. LOPRESSOR [Concomitant]
     Active Substance: METOPROLOL TARTRATE
     Indication: Chronic kidney disease
     Dosage: 50 MILLIGRAM, QD
     Route: 048
     Dates: start: 20220214
  6. EPOGEN [Concomitant]
     Active Substance: ERYTHROPOIETIN
     Indication: Chronic kidney disease
     Route: 058
     Dates: start: 20230817

REACTIONS (1)
  - Renal transplant [Unknown]

NARRATIVE: CASE EVENT DATE: 20250622
